FAERS Safety Report 4498402-0 (Version None)
Quarter: 2004Q4

REPORT INFORMATION
  Report Type: 
  Country: None (occurrence: None)
  Receive Date: 20041105
  Receipt Date: 20041022
  Transmission Date: 20050328
  Serious: Yes (Death)
  Sender: FDA-Public Use
  Company Number: 2004AP05474

PATIENT
  Age: 71 Year
  Sex: Male

DRUGS (18)
  1. IRESSA [Suspect]
     Indication: NON-SMALL CELL LUNG CANCER
     Dosage: 250 MG DAILY PO
     Route: 048
     Dates: start: 20040625, end: 20040818
  2. IRESSA [Suspect]
     Indication: SQUAMOUS CELL CARCINOMA
     Dosage: 250 MG DAILY PO
     Route: 048
     Dates: start: 20040625, end: 20040818
  3. PAXIL [Concomitant]
  4. GASMOTIN [Concomitant]
  5. METHIMAZOLE [Concomitant]
  6. THYRADIN S [Concomitant]
  7. LANDEL [Concomitant]
  8. LANSOPRAZOLE [Concomitant]
  9. HERBESSER ^DELTA^ [Concomitant]
  10. SELBEX [Concomitant]
  11. MYONAL [Concomitant]
  12. NAIXAN [Concomitant]
  13. ERYTHROCIN [Concomitant]
  14. ASTOMIN [Concomitant]
  15. CISPLATIN [Concomitant]
  16. DOCETAXEL [Concomitant]
  17. CARBOPLATIN [Concomitant]
  18. RADIOTHERAPY [Concomitant]

REACTIONS (1)
  - PLATELET COUNT DECREASED [None]
